FAERS Safety Report 8447165-2 (Version None)
Quarter: 2012Q2

REPORT INFORMATION
  Report Type: 
  Country: None (occurrence: None)
  Receive Date: 20120619
  Receipt Date: 20120613
  Transmission Date: 20120825
  Serious: No
  Sender: FDA-Public Use
  Company Number: US-PFIZER INC-2012142800

PATIENT
  Sex: Male
  Weight: 77 kg

DRUGS (2)
  1. LIPITOR [Suspect]
     Indication: BLOOD CHOLESTEROL INCREASED
     Dosage: 20 MG, 1X/DAY
     Route: 048
  2. ACETAMINOPHEN [Concomitant]
     Dosage: UNK, AS NEEDED

REACTIONS (2)
  - BLOOD TRIGLYCERIDES INCREASED [None]
  - ASTHENIA [None]
